FAERS Safety Report 4482177-5 (Version None)
Quarter: 2004Q4

REPORT INFORMATION
  Report Type: 
  Country: None (occurrence: None)
  Receive Date: 20041020
  Receipt Date: 20041020
  Transmission Date: 20050328
  Serious: Yes (Life-Threatening, Hospitalization)
  Sender: FDA-Public Use
  Company Number: None

PATIENT
  Age: 59 Year
  Sex: Male
  Weight: 100 kg

DRUGS (2)
  1. ALTEPLASE 50MG GENETECH [Suspect]
     Indication: ARTERIAL THROMBOSIS LIMB
     Dosage: 5MG; 2MG/HR   BOLUS;INFUSION INTRA-ARTE
     Route: 013
     Dates: start: 20041015, end: 20041015
  2. HEPARIN [Suspect]
     Indication: ARTERIAL THROMBOSIS LIMB
     Dosage: 650UNITS/HR  INFUSION  INTRAVENOUS
     Route: 042
     Dates: start: 20041015, end: 20041016

REACTIONS (1)
  - HAEMORRHAGE INTRACRANIAL [None]
